FAERS Safety Report 6205019-6 (Version None)
Quarter: 2009Q2

REPORT INFORMATION
  Report Type: 
  Country: None (occurrence: None)
  Receive Date: 20090527
  Receipt Date: 20090217
  Transmission Date: 20091009
  Serious: No
  Sender: FDA-Public Use
  Company Number: US-ABBOTT-09P-163-0557785-00

PATIENT
  Sex: Female

DRUGS (5)
  1. SIMCOR [Suspect]
     Indication: DRUG USE FOR UNKNOWN INDICATION
     Dosage: 500MG/20MG
     Dates: start: 20090211, end: 20090213
  2. ASPIRIN [Concomitant]
     Indication: PROPHYLAXIS
     Route: 048
  3. HUMALOG [Concomitant]
     Indication: DRUG USE FOR UNKNOWN INDICATION
     Route: 058
  4. LENTIS [Concomitant]
     Indication: DRUG USE FOR UNKNOWN INDICATION
     Route: 058
  5. PRILOSEC [Concomitant]
     Indication: DRUG USE FOR UNKNOWN INDICATION
     Route: 048

REACTIONS (4)
  - BLOOD GLUCOSE INCREASED [None]
  - DIARRHOEA [None]
  - FLUSHING [None]
  - HEADACHE [None]
